FAERS Safety Report 17981271 (Version 2)
Quarter: 2020Q4

REPORT INFORMATION
  Report Type: Report from Study
  Country: US (occurrence: US)
  Receive Date: 20200705
  Receipt Date: 20201101
  Transmission Date: 20210113
  Serious: Yes (Death, Life-Threatening, Other)
  Sender: FDA-Public Use
  Company Number: NVSC2020US184873

PATIENT
  Age: 25 Year
  Sex: Female

DRUGS (4)
  1. KYMRIAH [Suspect]
     Active Substance: TISAGENLECLEUCEL
     Dosage: UNK UNK, ONCE/SINGLE
     Route: 041
  2. CYCLOPHOSPHAMIDE. [Concomitant]
     Active Substance: CYCLOPHOSPHAMIDE
     Indication: CHEMOTHERAPY
     Dosage: UNK
     Route: 065
  3. FLUDARABINE [Concomitant]
     Active Substance: FLUDARABINE PHOSPHATE
     Indication: CHEMOTHERAPY
     Dosage: UNK
     Route: 065
  4. KYMRIAH [Suspect]
     Active Substance: TISAGENLECLEUCEL
     Indication: B-CELL TYPE ACUTE LEUKAEMIA
     Dosage: UNK UNK, ONCE/SINGLE
     Route: 041

REACTIONS (13)
  - Hypoxia [Not Recovered/Not Resolved]
  - Neutropenia [Not Recovered/Not Resolved]
  - Mental status changes [Unknown]
  - Treatment failure [Unknown]
  - Pneumonia [Fatal]
  - Pulmonary toxicity [Unknown]
  - Acute respiratory distress syndrome [Fatal]
  - Neurotoxicity [Not Recovered/Not Resolved]
  - White blood cell count decreased [Unknown]
  - Thrombocytopenia [Unknown]
  - Cytopenia [Unknown]
  - Cytokine release syndrome [Not Recovered/Not Resolved]
  - Pyrexia [Not Recovered/Not Resolved]
